FAERS Safety Report 26087147 (Version 1)
Quarter: 2025Q4

REPORT INFORMATION
  Report Type: Spontaneous
  Country: US (occurrence: None)
  Receive Date: 20251124
  Receipt Date: 20251124
  Transmission Date: 20260119
  Serious: Yes (Hospitalization)
  Sender: FDA-CTU
  Company Number: None

PATIENT
  Age: 12 Year
  Sex: Male

DRUGS (8)
  1. DUPIXENT [Suspect]
     Active Substance: DUPILUMAB
     Indication: Asthma
     Dosage: 300MG EVERY OTHER WEEK SUBCUTANEOUS
     Route: 058
     Dates: start: 20251021
  2. OXYCODONE IMMEDIATE REL [Concomitant]
  3. VALIUM [Concomitant]
     Active Substance: DIAZEPAM
  4. IBUPROFEN ORAL SUSP [Concomitant]
  5. DULERA [Concomitant]
     Active Substance: FORMOTEROL FUMARATE DIHYDRATE\MOMETASONE FUROATE
  6. ALUTEROL [Concomitant]
  7. VYAANSE [Concomitant]
  8. EPIPEN [Concomitant]
     Active Substance: EPINEPHRINE

REACTIONS (1)
  - Ligament operation [None]

NARRATIVE: CASE EVENT DATE: 20251117
